FAERS Safety Report 15321075 (Version 1)
Quarter: 2018Q3

REPORT INFORMATION
  Report Type: Spontaneous
  Country: US (occurrence: US)
  Receive Date: 20180827
  Receipt Date: 20180827
  Transmission Date: 20181010
  Serious: No
  Sender: FDA-Public Use
  Company Number: US-BRAINTREE LABORATORIES-180314

PATIENT
  Age: 50 Year
  Sex: Female
  Weight: 72.57 kg

DRUGS (1)
  1. GOLYTELY [Suspect]
     Active Substance: POLYETHYLENE GLYCOL 3350\POTASSIUM CHLORIDE\SODIUM BICARBONATE\SODIUM CHLORIDE\SODIUM SULFATE ANHYDROUS
     Indication: COLONOSCOPY
     Dosage: 0.9L
     Route: 048
     Dates: start: 20180613, end: 20180613

REACTIONS (2)
  - Nausea [None]
  - Retching [None]

NARRATIVE: CASE EVENT DATE: 20180613
